FAERS Safety Report 7986614-0 (Version None)
Quarter: 2011Q4

REPORT INFORMATION
  Report Type: 
  Country: None (occurrence: None)
  Receive Date: 20111216
  Receipt Date: 20110207
  Transmission Date: 20120403
  Serious: No
  Sender: FDA-Public Use
  Company Number: US-BRISTOL-MYERS SQUIBB COMPANY-15532807

PATIENT
  Age: 63 Year
  Sex: Female

DRUGS (2)
  1. LEXAPRO [Concomitant]
  2. ABILIFY [Suspect]
     Dosage: DURATION OF THERAPY:ALMOST 5 YEARS

REACTIONS (1)
  - TOOTH LOSS [None]
